FAERS Safety Report 10369573 (Version 1)
Quarter: 2014Q3

REPORT INFORMATION
  Report Type: Spontaneous
  Country: US (occurrence: US)
  Receive Date: 20140807
  Receipt Date: 20140807
  Transmission Date: 20150326
  Serious: No
  Sender: FDA-Public Use
  Company Number: US-AMGEN INC.-USASP2014020314

PATIENT
  Age: 51 Year
  Sex: Female

DRUGS (18)
  1. TAXOL [Concomitant]
     Active Substance: PACLITAXEL
     Dosage: 143 MG, UNK
     Route: 042
     Dates: start: 20110728
  2. HERCEPTIN [Suspect]
     Active Substance: TRASTUZUMAB
     Dosage: 156 MG, UNK
     Route: 042
     Dates: start: 20110616
  3. HERCEPTIN [Suspect]
     Active Substance: TRASTUZUMAB
     Dosage: 152 MG, UNK
     Route: 042
     Dates: start: 20110519
  4. HEPARIN [Concomitant]
     Active Substance: HEPARIN SODIUM
     Dosage: UNK
  5. HERCEPTIN [Suspect]
     Active Substance: TRASTUZUMAB
     Indication: BREAST CANCER
     Dosage: 463 MG, UNK
     Route: 042
     Dates: start: 20111103
  6. TAXOL [Concomitant]
     Active Substance: PACLITAXEL
     Dosage: 146 MG, UNK
     Route: 042
  7. PALONOSETRON [Concomitant]
     Active Substance: PALONOSETRON
     Dosage: 0.25 MG, UNK
     Route: 042
  8. HERCEPTIN [Suspect]
     Active Substance: TRASTUZUMAB
     Dosage: 468 MG, UNK
     Route: 042
     Dates: start: 20110811
  9. HERCEPTIN [Suspect]
     Active Substance: TRASTUZUMAB
     Dosage: 465 MG, UNK
     Route: 042
     Dates: start: 20110922
  10. HERCEPTIN [Suspect]
     Active Substance: TRASTUZUMAB
     Dosage: 156 MG, UNK
     Route: 042
     Dates: start: 20110630
  11. HERCEPTIN [Suspect]
     Active Substance: TRASTUZUMAB
     Dosage: 476 MG, UNK
     Route: 042
     Dates: start: 20111013
  12. DARBEPOETIN ALFA [Concomitant]
     Active Substance: DARBEPOETIN ALFA
     Dosage: 300 MUG, UNK
     Route: 058
  13. ACETAMINOPHEN. [Concomitant]
     Active Substance: ACETAMINOPHEN
     Dosage: 650 MG, UNK
     Route: 042
  14. FILGRASTIM [Suspect]
     Active Substance: FILGRASTIM
     Indication: PRODUCT USED FOR UNKNOWN INDICATION
     Dosage: 300 MUG, UNK
     Route: 058
  15. HERCEPTIN [Suspect]
     Active Substance: TRASTUZUMAB
     Dosage: 159 MG, QWK
     Route: 042
     Dates: start: 20110707
  16. HERCEPTIN [Suspect]
     Active Substance: TRASTUZUMAB
     Dosage: 152 MG, UNK
     Route: 042
     Dates: start: 20110526
  17. DEXAMETHASONE. [Concomitant]
     Active Substance: DEXAMETHASONE
     Dosage: 10 MG, UNK
     Route: 042
     Dates: start: 20110728
  18. RANITIDINE HCL [Concomitant]
     Active Substance: RANITIDINE HYDROCHLORIDE
     Dosage: 50 MG, UNK
     Route: 042
     Dates: start: 20110728

REACTIONS (2)
  - Pain [Unknown]
  - Nausea [Unknown]
